FAERS Safety Report 9475936 (Version 1)
Quarter: 2013Q3

REPORT INFORMATION
  Report Type: Spontaneous
  Country: FR (occurrence: None)
  Receive Date: 20130821
  Receipt Date: 20130821
  Transmission Date: 20140515
  Serious: Yes (Hospitalization, Other)
  Sender: FDA-Public Use
  Company Number: AXC-2013-000385

PATIENT
  Age: 61 Year
  Sex: Male

DRUGS (10)
  1. SUCRALFATE [Suspect]
     Indication: PRODUCT USED FOR UNKNOWN INDICATION
     Route: 048
     Dates: start: 20130525, end: 20130611
  2. AMOXICILLIN [Suspect]
     Indication: PRODUCT USED FOR UNKNOWN INDICATION
     Route: 042
     Dates: start: 20130529, end: 20130608
  3. MECIR [Suspect]
     Indication: PRODUCT USED FOR UNKNOWN INDICATION
     Route: 048
     Dates: start: 20130604, end: 20130611
  4. IPRATROPIUM [Concomitant]
  5. HALDOL [Concomitant]
  6. AOTAL [Concomitant]
  7. TERBUTALINE [Concomitant]
  8. CEFTRIAXONE [Concomitant]
  9. METRONIDAZOLE [Concomitant]
  10. SODIUM CHLORIDE [Concomitant]

REACTIONS (6)
  - Neutropenia [None]
  - Enterococcal infection [None]
  - Escherichia infection [None]
  - Multiple-drug resistance [None]
  - Toxicity to various agents [None]
  - Bone marrow myelogram abnormal [None]
